FAERS Safety Report 7335503-3 (Version None)
Quarter: 2011Q1

REPORT INFORMATION
  Report Type: 
  Country: None (occurrence: None)
  Receive Date: 20110301
  Receipt Date: 20110301
  Transmission Date: 20110831
  Serious: Yes (Hospitalization)
  Sender: FDA-Public Use
  Company Number: None

PATIENT
  Age: 77 Year
  Sex: Male
  Weight: 90.9 kg

DRUGS (2)
  1. CELADRIN EXTRA STRENGTH IMAGENEFIX [Suspect]
     Indication: JOINT STIFFNESS
     Dosage: TWO PILL TWICE TWICE A DAY TWICE A DAY WITH A MEAL
     Dates: start: 20110216, end: 20110217
  2. CELADRIN EXTRA STRENGTH IMAGENEFIX [Suspect]
     Indication: ARTHRALGIA
     Dosage: TWO PILL TWICE TWICE A DAY TWICE A DAY WITH A MEAL
     Dates: start: 20110216, end: 20110217

REACTIONS (5)
  - DRUG INTERACTION [None]
  - HYPERHIDROSIS [None]
  - DRUG HYPERSENSITIVITY [None]
  - ARTHRALGIA [None]
  - CHEST PAIN [None]
